FAERS Safety Report 6653458-1 (Version None)
Quarter: 2010Q1

REPORT INFORMATION
  Report Type: 
  Country: None (occurrence: None)
  Receive Date: 20100326
  Receipt Date: 20100324
  Transmission Date: 20100710
  Serious: Yes (Other)
  Sender: FDA-Public Use
  Company Number: PHEH2009US00886

PATIENT

DRUGS (17)
  1. ELIDEL [Suspect]
     Indication: ECZEMA
     Dosage: UNK
     Route: 061
     Dates: start: 20030401, end: 20061201
  2. PROTOPIC [Suspect]
  3. BUPROPION HCL [Concomitant]
  4. SERTRALINE HCL [Concomitant]
  5. METHYLPREDNISOLONE [Concomitant]
  6. LORAZEPAM [Concomitant]
  7. BENZONATATE [Concomitant]
  8. PROCHLORPERAZINE [Concomitant]
  9. HYDROCODONE BITARTRATE AND ACETAMINOPHEN [Concomitant]
  10. CEFADROXIL [Concomitant]
  11. CHLORHEXIDINE GLUCONATE [Concomitant]
  12. CLINDAMYCIN [Concomitant]
  13. DOXYCYCLINE [Concomitant]
  14. PENICILLIN VK [Concomitant]
  15. ALPRAZOLAM [Concomitant]
  16. CLARINEX                                /DEN/ [Concomitant]
  17. ZOLOFT [Concomitant]

REACTIONS (10)
  - BIOPSY [None]
  - DYSPLASIA [None]
  - FIBROSIS [None]
  - HYPOAESTHESIA [None]
  - INJURY [None]
  - JAW OPERATION [None]
  - LYMPHOCYTIC INFILTRATION [None]
  - MASS [None]
  - NON-HODGKIN'S LYMPHOMA [None]
  - SWELLING [None]
